FAERS Safety Report 4328928-1 (Version None)
Quarter: 2004Q1

REPORT INFORMATION
  Report Type: 
  Country: None (occurrence: None)
  Receive Date: 20040329
  Receipt Date: 20040116
  Transmission Date: 20041129
  Serious: No
  Sender: FDA-Public Use
  Company Number: 04P-163-0247370-00

PATIENT
  Age: 69 Year
  Sex: Female

DRUGS (23)
  1. HUMIRA [Suspect]
     Indication: RHEUMATOID ARTHRITIS
     Dosage: 40 MG, 1 IN 2 WK, SUBCUTANEOUS
     Route: 058
     Dates: start: 20030101
  2. FLUOXETINE HCL [Concomitant]
  3. OMEPRAZOLE [Concomitant]
  4. MORPHINE [Concomitant]
  5. FOLIC ACID [Concomitant]
  6. PREDNISONE [Concomitant]
  7. BENAZEPRIL HCL [Concomitant]
  8. LEVOTHYROXINE SODIUM [Concomitant]
  9. OXYCODONE HCL [Concomitant]
  10. FENOFIBRATE [Concomitant]
  11. CYCLOBENZAPRINE HYDROCHLORIDE [Concomitant]
  12. METHOTREXATE [Concomitant]
  13. PHENERGAN [Concomitant]
  14. TIMOLLOL MALEATE [Concomitant]
  15. XALATEN [Concomitant]
  16. BRIMONIDINE TARTRATE [Concomitant]
  17. MULTI-VITAMINS [Concomitant]
  18. MULTI-VITAMINS [Concomitant]
  19. OSCAL WITH VITAMIN D [Concomitant]
  20. ASCORBIC ACID [Concomitant]
  21. RETINOL [Concomitant]
  22. FISH OIL [Concomitant]
  23. SOY 50+ [Concomitant]

REACTIONS (2)
  - NASOPHARYNGITIS [None]
  - PYREXIA [None]
